FAERS Safety Report 6768409-9 (Version None)
Quarter: 2010Q2

REPORT INFORMATION
  Report Type: 
  Country: None (occurrence: None)
  Receive Date: 20100614
  Receipt Date: 20100603
  Transmission Date: 20101027
  Serious: Yes (Other)
  Sender: FDA-Public Use
  Company Number: GB-AMGEN-QUU414239

PATIENT
  Sex: Female
  Weight: 57 kg

DRUGS (2)
  1. ENBREL [Suspect]
     Indication: PSORIASIS
     Route: 058
     Dates: start: 20100108, end: 20100428
  2. METHOTREXATE [Concomitant]
     Dosage: UNKNOWN

REACTIONS (4)
  - CATARACT [None]
  - HEADACHE [None]
  - MALAISE [None]
  - VISION BLURRED [None]
